FAERS Safety Report 7853561-4 (Version None)
Quarter: 2011Q3

REPORT INFORMATION
  Report Type: 
  Country: None (occurrence: None)
  Receive Date: 20110915
  Receipt Date: 20101203
  Transmission Date: 20111222
  Serious: Yes (Other)
  Sender: FDA-Public Use
  Company Number: 2010027053

PATIENT
  Sex: Female
  Weight: 66.5 kg

DRUGS (6)
  1. PRIVIGEN [Suspect]
  2. PRENATAL VITAMINS (PRENATAL VITAMINS) [Concomitant]
  3. PRIVIGEN [Suspect]
  4. IRON (IRON) [Concomitant]
  5. PRIVIGEN [Suspect]
     Indication: THROMBOCYTOPENIA NEONATAL
     Dosage: (2G/KG, 130G, 1300ML AT A RATE OF 300ML/HR)
     Route: 042
     Dates: start: 20101011, end: 20101011
  6. PRIVIGEN [Suspect]
     Indication: THROMBOCYTOPENIA NEONATAL
     Dosage: (2G/KG, 130 G, 1300 ML AT A RATE OF 300ML/HR INTRAVENOUS (NOT OTHERWISE SPECIFIED)
     Dates: start: 20101004, end: 20101004

REACTIONS (3)
  - HAEMOGLOBIN DECREASED [None]
  - ANAEMIA [None]
  - HAEMOLYSIS [None]
